FAERS Safety Report 7537514-1 (Version None)
Quarter: 2011Q2

REPORT INFORMATION
  Report Type: 
  Country: None (occurrence: None)
  Receive Date: 20110609
  Receipt Date: 20070420
  Transmission Date: 20111010
  Serious: Yes (Hospitalization, Other)
  Sender: FDA-Public Use
  Company Number: PHMT2007CA00644

PATIENT
  Sex: Male

DRUGS (12)
  1. CLONAZEPAM [Concomitant]
     Dosage: 1 MG, TID
  2. LEVOTHYROXINE SODIUM [Concomitant]
     Dosage: 0.5 MG, QD
  3. VASOTEC [Concomitant]
     Dosage: 2.5 MG, QD
  4. VALPROATE SODIUM [Concomitant]
     Dosage: 375 MG, QHS
  5. GABAPENTIN [Concomitant]
     Dosage: 300 MG, QID
  6. MILK OF MAGNESIA TAB [Concomitant]
     Dosage: 30 MG, BID
  7. VITAMIN B-12 [Concomitant]
     Dosage: 125 MG, QD
  8. CLOZAPINE [Suspect]
     Indication: SCHIZOPHRENIA
     Dosage: 125 MG, QHS
     Route: 048
     Dates: start: 20060712
  9. VALPROATE SODIUM [Concomitant]
     Dosage: 250 MG, TID
  10. LUVOX [Concomitant]
     Dosage: 150 MG, BID
  11. ROCALTROL [Concomitant]
     Dosage: 0.25 MG, QD
  12. FERROUS SULFATE TAB [Concomitant]
     Dosage: 300 MG, TID

REACTIONS (2)
  - PNEUMONIA [None]
  - RESPIRATORY ACIDOSIS [None]
